FAERS Safety Report 8483634-7 (Version None)
Quarter: 2012Q3

REPORT INFORMATION
  Report Type: 
  Country: None (occurrence: None)
  Receive Date: 20120702
  Receipt Date: 20120626
  Transmission Date: 20120928
  Serious: Yes (Hospitalization)
  Sender: FDA-Public Use
  Company Number: NL-BAYER-2012-062786

PATIENT
  Age: 78 Year
  Sex: Female
  Weight: 55 kg

DRUGS (7)
  1. XARELTO [Interacting]
     Indication: THROMBOSIS PROPHYLAXIS
  2. PRIMPERAN TAB [Concomitant]
     Dosage: 10 MG, PRN
  3. CRESTOR [Concomitant]
     Dosage: 5 MG, QD
     Route: 048
  4. PERSANTIN [Concomitant]
     Dosage: 200 MG, QD
  5. RAMIPRIL [Concomitant]
     Dosage: 2.5 MG, QD
  6. ASPIRIN [Suspect]
     Dosage: 80 MG, QD
  7. XARELTO [Interacting]
     Indication: HIP ARTHROPLASTY
     Dosage: 10 MG, QD
     Route: 048
     Dates: start: 20120424, end: 20120519

REACTIONS (6)
  - NAUSEA [None]
  - DIARRHOEA [None]
  - VOMITING [None]
  - GASTROINTESTINAL HAEMORRHAGE [None]
  - MALAISE [None]
  - NORMOCHROMIC NORMOCYTIC ANAEMIA [None]
